FAERS Safety Report 8789342 (Version 3)
Quarter: 2012Q4

REPORT INFORMATION
  Report Type: Spontaneous
  Country: KR (occurrence: None)
  Receive Date: 20120905
  Receipt Date: 20121010
  Transmission Date: 20130627
  Serious: Yes (Other)
  Sender: FDA-Public Use
  Company Number: JP-2012-16123

PATIENT
  Age: 69 Year
  Sex: Male

DRUGS (16)
  1. OPC-13013 [Suspect]
     Indication: ANGINA PECTORIS
     Route: 048
     Dates: start: 20120727, end: 20120804
  2. OPC-13013 [Suspect]
     Indication: ARTERIOSCLEROSIS OBLITERANS
     Route: 048
     Dates: start: 20120727, end: 20120804
  3. OPC-13013 [Suspect]
     Indication: ANGINA PECTORIS
     Route: 048
     Dates: start: 20120804, end: 20120821
  4. OPC-13013 [Suspect]
     Indication: ARTERIOSCLEROSIS OBLITERANS
     Route: 048
     Dates: start: 20120804, end: 20120821
  5. LORELCO [Suspect]
     Indication: ANGINA PECTORIS
     Route: 048
     Dates: start: 20120727, end: 20120821
  6. LORELCO [Suspect]
     Indication: ARTERIOSCLEROSIS OBLITERANS
     Route: 048
     Dates: start: 20120727, end: 20120821
  7. COZAAR PLUS F (HYDROCHLOROTHIAZIDE, LOSARTAN POTASSIUM) [Concomitant]
  8. ISOSORBIDE (ISOSORBIDE DINITRATE) [Concomitant]
  9. PANTOPRAZOLE (PANTOPRAZOLE SODIUM) [Concomitant]
  10. ATORVASTATIN (ATORVASTATIN CALCIUM) [Concomitant]
  11. CLOPIDOGREL (CLOPIDOGREL SULFATE) [Concomitant]
  12. BISOPROLOL HEMIFUMARATE (BISOPROLOL HEMIFUMARATE) [Concomitant]
  13. ASPIRIN (ASPIRIN) [Concomitant]
  14. GLIMEPIRIDE (GLIMEPIRIDE) [Concomitant]
  15. METFORMIN (METFORMIN HYDROCHLORIDE) [Concomitant]
  16. NITROGLYCERINE (GLYCERYL TRINITRATE) [Concomitant]

REACTIONS (2)
  - Blood creatine phosphokinase increased [None]
  - Haemorrhage subcutaneous [None]
